FAERS Safety Report 5624430-5 (Version None)
Quarter: 2008Q1

REPORT INFORMATION
  Report Type: 
  Country: None (occurrence: None)
  Receive Date: 20080213
  Receipt Date: 20080201
  Transmission Date: 20080703
  Serious: Yes (Hospitalization)
  Sender: FDA-Public Use
  Company Number: US-SANOFI-SYNTHELABO-A03200800391

PATIENT
  Age: 69 Year
  Sex: Male

DRUGS (3)
  1. ELOXATIN [Suspect]
     Route: 042
     Dates: start: 20060801, end: 20060801
  2. LEUCOVORIN CALCIUM [Suspect]
     Route: 042
     Dates: start: 20060801, end: 20060801
  3. FLUOROURACIL [Suspect]
     Route: 042
     Dates: start: 20060801, end: 20060801

REACTIONS (5)
  - CRYPTOGENIC ORGANISING PNEUMONIA [None]
  - DYSPNOEA [None]
  - FATIGUE [None]
  - HYPOXIA [None]
  - TACHYPNOEA [None]
